FAERS Safety Report 4770958-X (Version None)
Quarter: 2005Q3

REPORT INFORMATION
  Report Type: 
  Country: None (occurrence: None)
  Receive Date: 20050914
  Receipt Date: 20050830
  Transmission Date: 20060218
  Serious: Yes (Other)
  Sender: FDA-Public Use
  Company Number: CA_050908663

PATIENT
  Age: 77 Year
  Sex: Female

DRUGS (9)
  1. FORTEO [Suspect]
     Indication: OSTEOPOROSIS
     Dosage: 20 UG DAY
     Dates: start: 20050604
  2. SULCRATE (SUCRALFATE) [Concomitant]
  3. L-THYROXINE [Concomitant]
  4. QUININE SULPHATE [Concomitant]
  5. VITAMIN D [Concomitant]
  6. GLUCOSAMINE [Concomitant]
  7. CALCIUM GLUCONATE [Concomitant]
  8. LOSEC (OMEPRAZOLE SODIUM) [Concomitant]
  9. ASPIRIN [Concomitant]

REACTIONS (1)
  - CARCINOEMBRYONIC ANTIGEN INCREASED [None]
